FAERS Safety Report 20838434 (Version 3)
Quarter: 2022Q3

REPORT INFORMATION
  Report Type: Spontaneous
  Country: US (occurrence: US)
  Receive Date: 20220517
  Receipt Date: 20220714
  Transmission Date: 20221026
  Serious: Yes (Hospitalization, Other)
  Sender: FDA-Public Use
  Company Number: US-BRISTOL-MYERS SQUIBB COMPANY-2022-027461

PATIENT
  Age: 61 Year
  Sex: Male

DRUGS (1)
  1. REVLIMID [Suspect]
     Active Substance: LENALIDOMIDE
     Indication: Plasma cell myeloma
     Route: 048
     Dates: start: 202203, end: 202204

REACTIONS (5)
  - Dysgeusia [Unknown]
  - Chronic obstructive pulmonary disease [Unknown]
  - Hallucination [Unknown]
  - Amnesia [Unknown]
  - Constipation [Unknown]

NARRATIVE: CASE EVENT DATE: 20220407
